FAERS Safety Report 7393820-5 (Version None)
Quarter: 2011Q2

REPORT INFORMATION
  Report Type: 
  Country: None (occurrence: None)
  Receive Date: 20110405
  Receipt Date: 20101021
  Transmission Date: 20111010
  Serious: Yes (Hospitalization, Other)
  Sender: FDA-Public Use
  Company Number: US-BAYER-201010031NA

PATIENT
  Sex: Female
  Weight: 90.703 kg

DRUGS (8)
  1. PEPCID [Concomitant]
  2. PEPCID [Concomitant]
     Dosage: UNK
     Dates: start: 20070827
  3. YAZ [Suspect]
     Dosage: UNK
     Dates: start: 20090831, end: 20110120
  4. YAZ [Suspect]
     Dosage: UNK
     Dates: start: 20071028, end: 20090730
  5. ALEVE [Concomitant]
  6. IBUPROFEN [Concomitant]
     Dosage: UNK
     Dates: start: 20070827
  7. YAZ [Suspect]
     Route: 048
     Dates: start: 20070501, end: 20091201
  8. PRENATAL VITAMINS [Concomitant]
     Dosage: UNK
     Dates: start: 20070827

REACTIONS (3)
  - CHOLECYSTECTOMY [None]
  - HYDROCHOLECYSTIS [None]
  - CHOLELITHIASIS [None]
